FAERS Safety Report 5451635-9 (Version None)
Quarter: 2007Q3

REPORT INFORMATION
  Report Type: 
  Country: None (occurrence: None)
  Receive Date: 20070913
  Receipt Date: 20070906
  Transmission Date: 20080115
  Serious: Yes (Hospitalization)
  Sender: FDA-Public Use
  Company Number: BE-BOEHRINGER INGELHEIM PHARMACEUTICALS, INC.-2007-BL-00127BL

PATIENT
  Sex: Male
  Weight: 76.5 kg

DRUGS (5)
  1. VIRAMUNE [Suspect]
     Indication: HIV INFECTION
     Route: 048
     Dates: start: 19990222, end: 19990301
  2. VIRAMUNE [Suspect]
     Route: 048
     Dates: start: 19990301, end: 20070615
  3. EPIVIR [Concomitant]
     Indication: HIV INFECTION
     Route: 048
     Dates: start: 19970702
  4. TENOFOVIR DISOPROXIL FUMARATE [Concomitant]
     Indication: HIV INFECTION
     Route: 048
     Dates: start: 20030531
  5. PRAVASTATIN [Concomitant]
     Indication: HYPERLIPIDAEMIA
     Route: 048
     Dates: start: 20010202, end: 20070601

REACTIONS (3)
  - DRUG INTOLERANCE [None]
  - LEUKOCYTOCLASTIC VASCULITIS [None]
  - LIPODYSTROPHY ACQUIRED [None]
